FAERS Safety Report 5580792-9 (Version None)
Quarter: 2007Q4

REPORT INFORMATION
  Report Type: 
  Country: None (occurrence: None)
  Receive Date: 20071130
  Receipt Date: 20070716
  Transmission Date: 20080405
  Serious: No
  Sender: FDA-Public Use
  Company Number: US200707004088

PATIENT
  Age: 71 Year
  Sex: Male
  Weight: 86.2 kg

DRUGS (4)
  1. BYETTA [Suspect]
     Indication: TYPE 2 DIABETES MELLITUS
     Dosage: 5 UG, 2/D, 10 UG, 2/D SUBCUTANEOUS
     Route: 058
     Dates: start: 20070602, end: 20070626
  2. BYETTA [Suspect]
     Indication: TYPE 2 DIABETES MELLITUS
     Dosage: 5 UG, 2/D, 10 UG, 2/D SUBCUTANEOUS
     Route: 058
     Dates: start: 20070627
  3. METFORMIN HCL [Concomitant]
  4. AVANDIA [Concomitant]

REACTIONS (7)
  - ABDOMINAL DISTENSION [None]
  - BLOOD GLUCOSE ABNORMAL [None]
  - DECREASED APPETITE [None]
  - DRUG INEFFECTIVE [None]
  - NAUSEA [None]
  - TENSION [None]
  - WEIGHT DECREASED [None]
